FAERS Safety Report 7386022-X (Version None)
Quarter: 2011Q1

REPORT INFORMATION
  Report Type: 
  Country: None (occurrence: None)
  Receive Date: 20110331
  Receipt Date: 20110321
  Transmission Date: 20110831
  Serious: Yes (Hospitalization)
  Sender: FDA-Public Use
  Company Number: FR-JNJFOC-20110309926

PATIENT
  Sex: Female

DRUGS (26)
  1. DURAGESIC-100 [Suspect]
     Indication: PRODUCT USED FOR UNKNOWN INDICATION
     Route: 062
     Dates: start: 20101207, end: 20101215
  2. NOCTRAN [Concomitant]
  3. LOXEN [Concomitant]
  4. BICARBONATE SODIUM [Concomitant]
  5. FOLINIC ACID [Concomitant]
  6. PREVISCAN (FLUINDIONE) [Suspect]
     Indication: PRODUCT USED FOR UNKNOWN INDICATION
     Route: 048
     Dates: start: 20101207, end: 20101209
  7. ZOPHREN [Suspect]
     Indication: PRODUCT USED FOR UNKNOWN INDICATION
     Dosage: 1 OR 2 TABLETS PER DAY
     Route: 048
     Dates: start: 20101207, end: 20101209
  8. URSOLVAN [Concomitant]
  9. TRANXEN [Concomitant]
  10. ONDANSETRON [Suspect]
     Indication: PREMEDICATION
     Route: 065
  11. LEXOMIL [Concomitant]
  12. SOLUPRED [Concomitant]
  13. LANTUS [Concomitant]
  14. CREON [Concomitant]
  15. ELOXATIN [Suspect]
     Indication: PANCREATIC CARCINOMA
     Route: 042
  16. ALVERINE CITRATE, SIMETICONE [Concomitant]
  17. INIPOMP [Concomitant]
  18. MIFLONIL [Concomitant]
  19. DAFALGAN [Concomitant]
  20. ALDALIX [Concomitant]
  21. SOLU-MEDROL [Concomitant]
  22. FLUOROURACIL [Suspect]
     Indication: PANCREATIC CARCINOMA
     Route: 042
     Dates: start: 20101207, end: 20101208
  23. LEUCOVORIN CALCIUM [Concomitant]
     Indication: PANCREATIC CARCINOMA
     Route: 042
  24. FUNGIZONE [Concomitant]
  25. FORADIL [Concomitant]
  26. SPIRIVA [Concomitant]

REACTIONS (4)
  - CEREBROVASCULAR ACCIDENT [None]
  - AGITATION [None]
  - AGGRESSION [None]
  - GRAND MAL CONVULSION [None]
